FAERS Safety Report 10452082 (Version 1)
Quarter: 2014Q3

REPORT INFORMATION
  Report Type: Spontaneous
  Country: US (occurrence: None)
  Receive Date: 20140910
  Receipt Date: 20140910
  Transmission Date: 20150326
  Serious: Yes (Hospitalization, Other)
  Sender: FDA-Public Use
  Company Number: 2010S1004613

PATIENT
  Age: 45 Year
  Sex: Male

DRUGS (2)
  1. HYDROCHLOROTHIAZIDE. [Concomitant]
     Active Substance: HYDROCHLOROTHIAZIDE
  2. PHOSPHO-SODA [Suspect]
     Active Substance: SODIUM PHOSPHATE, DIBASIC\SODIUM PHOSPHATE, MONOBASIC
     Indication: PRODUCT USED FOR UNKNOWN INDICATION

REACTIONS (14)
  - Injury [None]
  - Groin pain [None]
  - Anaemia [None]
  - Venous stenosis [None]
  - Abdominal mass [None]
  - Hypocalcaemia [None]
  - Metabolic acidosis [None]
  - Renal failure [None]
  - Fatigue [None]
  - Renal failure chronic [None]
  - Chest pain [None]
  - Hyperkalaemia [None]
  - Dyspnoea [None]
  - Blood parathyroid hormone increased [None]

NARRATIVE: CASE EVENT DATE: 20021114
